FAERS Safety Report 7379937-X (Version None)
Quarter: 2011Q1

REPORT INFORMATION
  Report Type: 
  Country: None (occurrence: None)
  Receive Date: 20110329
  Receipt Date: 20110322
  Transmission Date: 20110831
  Serious: Yes (Hospitalization)
  Sender: FDA-Public Use
  Company Number: PHHO2007PT11888

PATIENT
  Sex: Female
  Weight: 51 kg

DRUGS (1)
  1. FTY 720 [Suspect]
     Indication: MULTIPLE SCLEROSIS
     Dosage: 1.25MG DAILY
     Route: 048
     Dates: start: 20040428

REACTIONS (1)
  - URINARY TRACT INFECTION [None]
